FAERS Safety Report 22519809 (Version 1)
Quarter: 2023Q2

REPORT INFORMATION
  Report Type: Spontaneous
  Country: US (occurrence: None)
  Receive Date: 20230602
  Receipt Date: 20230602
  Transmission Date: 20230721
  Serious: No
  Sender: FDA-Public Use
  Company Number: None

PATIENT
  Sex: Male

DRUGS (3)
  1. ABIRATERONE ACETATE [Suspect]
     Active Substance: ABIRATERONE ACETATE
     Indication: Prostate cancer
     Dosage: OTHER QUANTITY : 4T;?FREQUENCY : DAILY;?
     Route: 048
     Dates: start: 202301
  2. PREDINISONE [Concomitant]
  3. ALLOPURINOL [Suspect]
     Active Substance: ALLOPURINOL

REACTIONS (1)
  - Malignant neoplasm progression [None]
